FAERS Safety Report 25460832 (Version 4)
Quarter: 2025Q4

REPORT INFORMATION
  Report Type: Spontaneous
  Country: JP (occurrence: JP)
  Receive Date: 20250620
  Receipt Date: 20251022
  Transmission Date: 20260118
  Serious: Yes (Other)
  Sender: PFIZER
  Company Number: JP-ONO-2025JP010284

PATIENT
  Age: 77 Year
  Sex: Female
  Weight: 43.3 kg

DRUGS (10)
  1. BRAFTOVI [Suspect]
     Active Substance: ENCORAFENIB
     Indication: Colon cancer
     Dosage: 300 MG, EVERYDAY
     Route: 048
     Dates: start: 20250404, end: 20250404
  2. BRAFTOVI [Suspect]
     Active Substance: ENCORAFENIB
     Dosage: 225 MG, EVERYDAY
     Route: 048
     Dates: start: 20250417
  3. MEKTOVI [Suspect]
     Active Substance: BINIMETINIB
     Indication: Colon cancer
     Dosage: 45 MG, Q12H
     Route: 048
     Dates: start: 20250403, end: 20250403
  4. MEKTOVI [Suspect]
     Active Substance: BINIMETINIB
     Dosage: 45 MG, SINGLE
     Route: 048
     Dates: start: 20250404, end: 20250404
  5. CETUXIMAB SAROTALOCAN SODIUM [Concomitant]
     Active Substance: CETUXIMAB SAROTALOCAN SODIUM
     Indication: Colon cancer
     Dosage: 660 MG
     Route: 041
     Dates: start: 20250403
  6. BISMILLA [Concomitant]
     Indication: Prophylaxis
     Dosage: 2A, EVERYDAY
     Route: 041
     Dates: start: 20250403
  7. SOLU-CORTEF [Concomitant]
     Active Substance: HYDROCORTISONE SODIUM SUCCINATE
     Indication: Prophylaxis
     Dosage: 1V, EVERYDAY
     Route: 041
     Dates: start: 20250403
  8. PYRIDOXAL [Concomitant]
     Active Substance: PYRIDOXAL
     Indication: Prophylaxis
     Dosage: 20 MG, Q8H
     Route: 048
     Dates: start: 20250403, end: 20250404
  9. MINOCYCLINE HYDROCHLORIDE [Concomitant]
     Active Substance: MINOCYCLINE HYDROCHLORIDE
     Indication: Prophylaxis
     Dosage: 100 MG, Q12H
     Route: 048
     Dates: start: 20250403, end: 20250404
  10. MAGNESIUM OXIDE [Concomitant]
     Active Substance: MAGNESIUM OXIDE
     Indication: Prophylaxis
     Dosage: 330 MG, Q8H
     Route: 048

REACTIONS (5)
  - Macular oedema [Recovered/Resolved]
  - Melanocytic naevus [Recovering/Resolving]
  - Atrial tachycardia [Recovering/Resolving]
  - Platelet count increased [Unknown]
  - Off label use [Unknown]

NARRATIVE: CASE EVENT DATE: 20250403
